FAERS Safety Report 19031161 (Version 1)
Quarter: 2021Q1

REPORT INFORMATION
  Report Type: Spontaneous
  Country: US (occurrence: US)
  Receive Date: 20210319
  Receipt Date: 20210319
  Transmission Date: 20210420
  Serious: Yes (Other)
  Sender: FDA-Public Use
  Company Number: US-SUN PHARMACEUTICAL INDUSTRIES LTD-2021R1-280258

PATIENT
  Age: 69 Year
  Sex: Male

DRUGS (4)
  1. GABAPENTIN. [Suspect]
     Active Substance: GABAPENTIN
     Dosage: 900 MILLIGRAM, TID
     Route: 065
  2. GABAPENTIN. [Suspect]
     Active Substance: GABAPENTIN
     Dosage: 600 MILLIGRAM, TID
     Route: 065
  3. GABAPENTIN. [Suspect]
     Active Substance: GABAPENTIN
     Dosage: 800 MILLIGRAM, TID
     Route: 065
  4. GABAPENTIN. [Suspect]
     Active Substance: GABAPENTIN
     Indication: NEUROPATHY PERIPHERAL
     Dosage: 9600 MILLIGRAM, DAILY
     Route: 065

REACTIONS (9)
  - Diplopia [Recovered/Resolved]
  - Binocular eye movement disorder [Unknown]
  - Memory impairment [Unknown]
  - Toxicity to various agents [Unknown]
  - Myokymia [Recovering/Resolving]
  - Aggression [Unknown]
  - Aphasia [Unknown]
  - Deafness [Unknown]
  - Tremor [Unknown]
